FAERS Safety Report 25773140 (Version 1)
Quarter: 2025Q3

REPORT INFORMATION
  Report Type: Spontaneous
  Country: US (occurrence: None)
  Receive Date: 20250905
  Receipt Date: 20250905
  Transmission Date: 20251020
  Serious: Yes (Hospitalization)
  Sender: FDA-CTU
  Company Number: None

PATIENT
  Age: 66 Year
  Sex: Female

DRUGS (1)
  1. COSENTYX [Suspect]
     Active Substance: SECUKINUMAB
     Indication: Hidradenitis
     Dosage: 300MG EVERY 4 WEEKS

REACTIONS (7)
  - Furuncle [None]
  - Haematoma [None]
  - Cellulitis [None]
  - Hidradenitis [None]
  - Condition aggravated [None]
  - Therapy interrupted [None]
  - Insurance issue [None]
